FAERS Safety Report 13132385 (Version 3)
Quarter: 2017Q1

REPORT INFORMATION
  Report Type: Spontaneous
  Country: GR (occurrence: GR)
  Receive Date: 20170120
  Receipt Date: 20170207
  Transmission Date: 20170428
  Serious: Yes (Other)
  Sender: FDA-Public Use
  Company Number: GR-ABBVIE-17P-066-1845666-00

PATIENT
  Age: 65 Year
  Sex: Female

DRUGS (2)
  1. KLARICID [Suspect]
     Active Substance: CLARITHROMYCIN
     Indication: EPISTAXIS
     Route: 048
     Dates: start: 20170105, end: 20170110
  2. CHOLIB (FENOFIBRATE, SIMVASTATIN) [Concomitant]
     Indication: PRODUCT USED FOR UNKNOWN INDICATION

REACTIONS (4)
  - Heart rate increased [Recovered/Resolved]
  - Blood pressure increased [Recovered/Resolved]
  - Sensitivity of teeth [Recovered/Resolved]
  - Dry mouth [Recovered/Resolved]
